FAERS Safety Report 18777823 (Version 4)
Quarter: 2021Q4

REPORT INFORMATION
  Report Type: Spontaneous
  Country: US (occurrence: US)
  Receive Date: 20210122
  Receipt Date: 20211102
  Transmission Date: 20220303
  Serious: No
  Sender: FDA-Public Use
  Company Number: US-SEATTLE GENETICS-2020SGN03668

PATIENT
  Sex: Female

DRUGS (6)
  1. TUKYSA [Suspect]
     Active Substance: TUCATINIB
     Indication: Breast cancer female
     Dosage: UNK UNK, BID
  2. TUKYSA [Suspect]
     Active Substance: TUCATINIB
     Dosage: UNK
  3. TUKYSA [Suspect]
     Active Substance: TUCATINIB
     Dosage: UNK
  4. TUKYSA [Suspect]
     Active Substance: TUCATINIB
     Dosage: UNK
  5. TUKYSA [Suspect]
     Active Substance: TUCATINIB
     Dosage: UNK
  6. TUKYSA [Suspect]
     Active Substance: TUCATINIB
     Dosage: UNK

REACTIONS (4)
  - Burning sensation [Recovering/Resolving]
  - Pain in extremity [Unknown]
  - COVID-19 [Unknown]
  - Radiotherapy [Unknown]
